FAERS Safety Report 11288642 (Version 3)
Quarter: 2016Q2

REPORT INFORMATION
  Report Type: Report from Study
  Country: US (occurrence: US)
  Receive Date: 20150721
  Receipt Date: 20160608
  Transmission Date: 20160815
  Serious: Yes (Other)
  Sender: FDA-Public Use
  Company Number: US-JNJFOC-20150708269

PATIENT
  Sex: Female
  Weight: 61.69 kg

DRUGS (11)
  1. CALCIUM [Concomitant]
     Active Substance: CALCIUM
     Route: 065
  2. VITAMIN D3 [Concomitant]
     Active Substance: CHOLECALCIFEROL
     Route: 065
  3. CALCITRIOL. [Concomitant]
     Active Substance: CALCITRIOL
     Indication: BONE DISORDER
     Route: 048
     Dates: start: 2015
  4. LORATADINE. [Concomitant]
     Active Substance: LORATADINE
     Route: 048
  5. UCERIS [Concomitant]
     Active Substance: BUDESONIDE
     Indication: INFLAMMATION
     Route: 048
     Dates: start: 201506
  6. SIMPONI [Suspect]
     Active Substance: GOLIMUMAB
     Indication: COLITIS ULCERATIVE
     Route: 058
  7. CALCIUM CITRATE [Concomitant]
     Active Substance: CALCIUM CITRATE
     Route: 048
  8. CELLCEPT [Concomitant]
     Active Substance: MYCOPHENOLATE MOFETIL\MYCOPHENOLATE MOFETIL HYDROCHLORIDE
     Indication: GLOMERULONEPHRITIS MEMBRANOUS
     Dosage: CAPSULE/ TABLET
     Route: 048
     Dates: start: 2013
  9. LIPITOR [Concomitant]
     Active Substance: ATORVASTATIN CALCIUM
     Indication: BLOOD CHOLESTEROL
     Route: 048
     Dates: start: 2010
  10. SIMPONI [Suspect]
     Active Substance: GOLIMUMAB
     Indication: COLITIS ULCERATIVE
     Route: 058
     Dates: start: 201411
  11. DELTASONE [Concomitant]
     Active Substance: PREDNISONE
     Route: 048

REACTIONS (6)
  - Candida infection [Recovering/Resolving]
  - Colitis ulcerative [Not Recovered/Not Resolved]
  - Adverse event [Unknown]
  - Sinusitis [Unknown]
  - Antibody test abnormal [Unknown]
  - Drug ineffective [Unknown]

NARRATIVE: CASE EVENT DATE: 2015
